FAERS Safety Report 10313421 (Version 1)
Quarter: 2014Q3

REPORT INFORMATION
  Report Type: Spontaneous
  Country: RU (occurrence: RU)
  Receive Date: 20140718
  Receipt Date: 20140718
  Transmission Date: 20150326
  Serious: Yes (Death)
  Sender: FDA-Public Use
  Company Number: RU-ASTRAZENECA-2014SE52116

PATIENT
  Age: 76 Year
  Sex: Male
  Weight: 70 kg

DRUGS (2)
  1. ASPIRIN. [Concomitant]
     Active Substance: ASPIRIN
     Route: 048
  2. BRILINTA [Suspect]
     Active Substance: TICAGRELOR
     Indication: ACUTE CORONARY SYNDROME
     Route: 048
     Dates: start: 20140511

REACTIONS (3)
  - Acute myocardial infarction [Fatal]
  - Haemorrhagic anaemia [Fatal]
  - Cystitis haemorrhagic [Fatal]

NARRATIVE: CASE EVENT DATE: 20140619
